FAERS Safety Report 4440266-5 (Version None)
Quarter: 2004Q3

REPORT INFORMATION
  Report Type: 
  Country: None (occurrence: None)
  Receive Date: 20040903
  Receipt Date: 20040503
  Transmission Date: 20050211
  Serious: No
  Sender: FDA-Public Use
  Company Number: US-GLAXOSMITHKLINE-A0509259A

PATIENT
  Sex: Male

DRUGS (6)
  1. REQUIP [Suspect]
     Indication: PARKINSON'S DISEASE
     Dosage: 2MG FIVE TIMES PER DAY
     Route: 048
     Dates: start: 20040430
  2. SERZONE [Concomitant]
  3. PREVACID [Concomitant]
  4. BUSPAR [Concomitant]
  5. CARDURA [Concomitant]
  6. MAXZIDE [Concomitant]

REACTIONS (2)
  - DRUG INEFFECTIVE [None]
  - INSOMNIA [None]
